FAERS Safety Report 19548873 (Version 1)
Quarter: 2021Q3

REPORT INFORMATION
  Report Type: Spontaneous
  Country: US (occurrence: US)
  Receive Date: 20210714
  Receipt Date: 20210714
  Transmission Date: 20211014
  Serious: Yes (Death)
  Sender: FDA-Public Use
  Company Number: None

PATIENT
  Age: 62 Year
  Sex: Female

DRUGS (20)
  1. DELTASONE [Concomitant]
     Active Substance: PREDNISONE
  2. FUROSEMIDE. [Concomitant]
     Active Substance: FUROSEMIDE
  3. HYDROZYZ PAM [Concomitant]
  4. SINGULAIR [Concomitant]
     Active Substance: MONTELUKAST SODIUM
  5. GABAPENTIN. [Concomitant]
     Active Substance: GABAPENTIN
  6. FLOVENT [Concomitant]
     Active Substance: FLUTICASONE PROPIONATE
  7. LISINOPRIL. [Concomitant]
     Active Substance: LISINOPRIL
  8. METFORMIN [Concomitant]
     Active Substance: METFORMIN HYDROCHLORIDE
  9. POT CHLORIDE [Concomitant]
     Active Substance: POTASSIUM CHLORIDE
  10. SYMBICORT [Concomitant]
     Active Substance: BUDESONIDE\FORMOTEROL FUMARATE DIHYDRATE
  11. SPIRIVA [Concomitant]
     Active Substance: TIOTROPIUM BROMIDE MONOHYDRATE
  12. VICTOZA [Concomitant]
     Active Substance: LIRAGLUTIDE
  13. TOBRAMYCIN 300MG/5ML [Suspect]
     Active Substance: TOBRAMYCIN
     Indication: BRONCHIECTASIS
     Dosage: ?          OTHER FREQUENCY:BID X 28 DAY;OTHER ROUTE:INHALE VIA NEBULIZER?
     Dates: start: 20170210
  14. HYDROCO/APAP [Concomitant]
     Active Substance: ACETAMINOPHEN\HYDROCODONE
  15. COMBVIENT [Concomitant]
  16. OMEPRAZOLE. [Concomitant]
     Active Substance: OMEPRAZOLE
  17. PRAVASTATIN. [Concomitant]
     Active Substance: PRAVASTATIN
  18. WARFARIN [Concomitant]
     Active Substance: WARFARIN
  19. NITROSTAT [Concomitant]
     Active Substance: NITROGLYCERIN
  20. PROLIA [Concomitant]
     Active Substance: DENOSUMAB

REACTIONS (1)
  - Death [None]

NARRATIVE: CASE EVENT DATE: 20210624
